FAERS Safety Report 14095773 (Version 1)
Quarter: 2017Q4

REPORT INFORMATION
  Report Type: Spontaneous
  Country: JP (occurrence: JP)
  Receive Date: 20171016
  Receipt Date: 20171016
  Transmission Date: 20180321
  Serious: Yes (Hospitalization)
  Sender: FDA-Public Use
  Company Number: JP-BRISTOL-MYERS SQUIBB COMPANY-11937430

PATIENT
  Age: 54 Year
  Sex: Female

DRUGS (3)
  1. TAXOL [Suspect]
     Active Substance: PACLITAXEL
     Indication: OVARIAN CANCER
     Dosage: 240 MG, UNK
     Route: 042
     Dates: start: 20020604, end: 20020604
  2. NEU-UP [Suspect]
     Active Substance: UNSPECIFIED INGREDIENT
     Indication: WHITE BLOOD CELL COUNT DECREASED
     Dosage: 50 ?G, UNK
     Route: 058
     Dates: start: 20020613, end: 20020617
  3. PARAPLATIN [Suspect]
     Active Substance: CARBOPLATIN
     Indication: OVARIAN CANCER
     Dosage: 500 MG, UNK
     Route: 042
     Dates: start: 20020604, end: 20020604

REACTIONS (1)
  - Thrombophlebitis [Recovered/Resolved]

NARRATIVE: CASE EVENT DATE: 20020613
